FAERS Safety Report 4791708-7 (Version None)
Quarter: 2005Q4

REPORT INFORMATION
  Report Type: 
  Country: None (occurrence: None)
  Receive Date: 20051007
  Receipt Date: 20051003
  Transmission Date: 20060501
  Serious: Yes (Death)
  Sender: FDA-Public Use
  Company Number: US-GLAXOSMITHKLINE-B0395868A

PATIENT
  Age: 27 Year

DRUGS (2)
  1. LAMOTRIGINE [Suspect]
     Route: 048
  2. QUETIAPINE FUMARATE [Suspect]
     Route: 048

REACTIONS (2)
  - CARDIO-RESPIRATORY ARREST [None]
  - COMPLETED SUICIDE [None]
